FAERS Safety Report 9323083 (Version 1)
Quarter: 2013Q2

REPORT INFORMATION
  Report Type: Spontaneous
  Country: ES (occurrence: ES)
  Receive Date: 20130603
  Receipt Date: 20130603
  Transmission Date: 20140414
  Serious: Yes (Hospitalization)
  Sender: FDA-Public Use
  Company Number: ES-009507513-1305ESP015386

PATIENT
  Sex: Male

DRUGS (3)
  1. PEGINTRON [Suspect]
     Indication: CHRONIC HEPATITIS C
     Dosage: 150 MICROGRAM, QW
     Route: 058
     Dates: start: 20130126, end: 20130321
  2. RIBAVIRIN [Suspect]
     Dosage: 0.2G, 6 TIMES A DAY
     Route: 048
     Dates: start: 20130126, end: 20130321
  3. TELAPREVIR [Suspect]
     Indication: CHRONIC HEPATITIS C
     Route: 048
     Dates: start: 20130126, end: 20130321

REACTIONS (1)
  - Eczema [Unknown]
